FAERS Safety Report 14072361 (Version 3)
Quarter: 2020Q3

REPORT INFORMATION
  Report Type: Spontaneous
  Country: US (occurrence: US)
  Receive Date: 20171010
  Receipt Date: 20200819
  Transmission Date: 20201102
  Serious: Yes (Other)
  Sender: FDA-Public Use
  Company Number: US-SA-2017SA184187

PATIENT
  Age: 79 Year
  Sex: Female

DRUGS (2)
  1. DUPIXENT [Suspect]
     Active Substance: DUPILUMAB
     Dosage: 600 MG, 1X
     Route: 058
     Dates: start: 20200812, end: 20200812
  2. DUPIXENT [Suspect]
     Active Substance: DUPILUMAB
     Indication: DERMATITIS ATOPIC
     Dosage: 300 MG, BIM
     Route: 058
     Dates: start: 20170801, end: 20170921

REACTIONS (7)
  - Glaucoma [Unknown]
  - Ocular hyperaemia [Unknown]
  - Macular degeneration [Unknown]
  - Injection site pain [Unknown]
  - Periorbital swelling [Unknown]
  - Herpes zoster [Recovering/Resolving]
  - Madarosis [Unknown]

NARRATIVE: CASE EVENT DATE: 2017
